FAERS Safety Report 10148427 (Version 2)
Quarter: 2014Q2

REPORT INFORMATION
  Report Type: Spontaneous
  Country: US (occurrence: US)
  Receive Date: 20140501
  Receipt Date: 20140501
  Transmission Date: 20141212
  Serious: No
  Sender: FDA-Public Use
  Company Number: US-AMGEN-USASP2014025590

PATIENT
  Age: 73 Year
  Sex: Female

DRUGS (1)
  1. ENBREL [Suspect]
     Indication: PSORIASIS
     Dosage: 50 MG, EVERY 3 TO 4 DAYS
     Route: 065
     Dates: start: 20140404

REACTIONS (3)
  - Sensitivity of teeth [Not Recovered/Not Resolved]
  - Medication error [Recovered/Resolved]
  - Sinusitis [Not Recovered/Not Resolved]
